FAERS Safety Report 8073503-9 (Version None)
Quarter: 2012Q1

REPORT INFORMATION
  Report Type: 
  Country: None (occurrence: None)
  Receive Date: 20120120
  Receipt Date: 20120109
  Transmission Date: 20120608
  Serious: Yes (Life-Threatening)
  Sender: FDA-Public Use
  Company Number: 54973 AE# 698

PATIENT
  Age: 3 Year
  Sex: Male

DRUGS (2)
  1. HYLAND'S NIGHTTIME COLD 'N COUGH LIQUID [Suspect]
     Indication: COUGH
     Dosage: ENTIRE BOTTLE AT ONCE
  2. HYLAND'S NIGHTTIME COLD 'N COUGH LIQUID [Suspect]
     Indication: NASOPHARYNGITIS
     Dosage: ENTIRE BOTTLE AT ONCE

REACTIONS (3)
  - ACCIDENTAL DRUG INTAKE BY CHILD [None]
  - DEAFNESS UNILATERAL [None]
  - FAILURE OF CHILD RESISTANT MECHANISM FOR PHARMACEUTICAL PRODUCT [None]
